FAERS Safety Report 15417828 (Version 3)
Quarter: 2018Q4

REPORT INFORMATION
  Report Type: Report from Study
  Country: GR (occurrence: GR)
  Receive Date: 20180924
  Receipt Date: 20181101
  Transmission Date: 20190204
  Serious: Yes (Hospitalization)
  Sender: FDA-Public Use
  Company Number: PHHO2018GR010308

PATIENT
  Age: 52 Year
  Sex: Male
  Weight: 93 kg

DRUGS (3)
  1. PLACEBO [Suspect]
     Active Substance: UNSPECIFIED INGREDIENT
     Indication: MALIGNANT MELANOMA
     Dosage: UNK
     Route: 042
     Dates: start: 20180607, end: 20180828
  2. DABRAFENIB [Suspect]
     Active Substance: DABRAFENIB
     Indication: MALIGNANT MELANOMA
     Dosage: 150 MG, BID
     Route: 048
     Dates: start: 20180607, end: 20180910
  3. TRAMETINIB [Suspect]
     Active Substance: TRAMETINIB
     Indication: MALIGNANT MELANOMA
     Dosage: 2 MG, QD
     Route: 048
     Dates: start: 20180607, end: 20180910

REACTIONS (2)
  - Cough [Recovered/Resolved]
  - Pulmonary haemorrhage [Recovered/Resolved]

NARRATIVE: CASE EVENT DATE: 20180902
